FAERS Safety Report 9940230 (Version 1)
Quarter: 2014Q1

REPORT INFORMATION
  Report Type: Report from Study
  Country: US (occurrence: US)
  Receive Date: 20140303
  Receipt Date: 20140303
  Transmission Date: 20141002
  Serious: No
  Sender: FDA-Public Use
  Company Number: US-ABBVIE-13P-163-1034658-00

PATIENT
  Age: 58 Year
  Sex: Female

DRUGS (6)
  1. HUMIRA [Suspect]
     Indication: RHEUMATOID ARTHRITIS
     Route: 058
     Dates: start: 201205
  2. HYDROXYCHLOROQUINE [Concomitant]
     Indication: RHEUMATOID ARTHRITIS
     Dosage: DAILY
  3. DEXTROAMPHETAMINE [Concomitant]
     Indication: SOMNOLENCE
     Dosage: ONCE A WEEK
  4. ZOLOFT [Concomitant]
     Indication: FIBROMYALGIA
     Dosage: DAILY
  5. AMBIEN [Concomitant]
     Indication: INSOMNIA
     Dosage: AT BEDIME
  6. LOPERAMIDE [Concomitant]
     Indication: PRODUCT USED FOR UNKNOWN INDICATION
     Dosage: AFTER EACH LOOSE STOOL

REACTIONS (1)
  - Diarrhoea [Not Recovered/Not Resolved]
